FAERS Safety Report 9195659 (Version 1)
Quarter: 2013Q1

REPORT INFORMATION
  Report Type: Spontaneous
  Country: US (occurrence: US)
  Receive Date: 20130328
  Receipt Date: 20130328
  Transmission Date: 20140127
  Serious: Yes (Hospitalization)
  Sender: FDA-Public Use
  Company Number: US-BIOGENIDEC-2013BI027756

PATIENT
  Age: 35 Year
  Sex: Female

DRUGS (5)
  1. TYSABRI [Suspect]
     Indication: MULTIPLE SCLEROSIS
     Route: 042
     Dates: start: 201205
  2. GABAPENTIN [Concomitant]
     Indication: HYPOAESTHESIA
  3. GABAPENTIN [Concomitant]
     Indication: NERVE COMPRESSION
  4. BACLOFEN [Concomitant]
     Indication: MULTIPLE SCLEROSIS RELAPSE
  5. BACLOFEN [Concomitant]
     Indication: BAND SENSATION

REACTIONS (1)
  - Ovarian cyst [Recovered/Resolved]
